FAERS Safety Report 5081869-7 (Version None)
Quarter: 2006Q3

REPORT INFORMATION
  Report Type: 
  Country: None (occurrence: None)
  Receive Date: 20060816
  Receipt Date: 20060807
  Transmission Date: 20061208
  Serious: Yes (Hospitalization)
  Sender: FDA-Public Use
  Company Number: FR-BRISTOL-MYERS SQUIBB COMPANY-13472774

PATIENT
  Age: 47 Year
  Sex: Female

DRUGS (12)
  1. ENDOXAN [Suspect]
     Indication: DRUG USE FOR UNKNOWN INDICATION
     Route: 042
     Dates: start: 20060620, end: 20060620
  2. LASILIX [Suspect]
     Indication: DRUG USE FOR UNKNOWN INDICATION
  3. TRIATEC [Suspect]
     Indication: DRUG USE FOR UNKNOWN INDICATION
  4. ZOPHREN [Concomitant]
     Dates: start: 20060620
  5. UROMITEXAN [Concomitant]
  6. DOPAMINE [Concomitant]
  7. DOBUTAMINE HCL [Concomitant]
  8. METHYLPREDNISOLONE [Concomitant]
  9. ALDACTONE [Concomitant]
  10. MESTINON [Concomitant]
  11. GUTRON [Concomitant]
  12. HEPARIN [Concomitant]

REACTIONS (2)
  - ALANINE AMINOTRANSFERASE INCREASED [None]
  - HEPATITIS [None]
